APPROVED DRUG PRODUCT: NAPROXEN
Active Ingredient: NAPROXEN
Strength: 500MG
Dosage Form/Route: TABLET, DELAYED RELEASE;ORAL
Application: A216908 | Product #002 | TE Code: AB
Applicant: TP ANDA HOLDINGS LLC
Approved: May 31, 2023 | RLD: No | RS: No | Type: RX